FAERS Safety Report 5236965-8 (Version None)
Quarter: 2007Q1

REPORT INFORMATION
  Report Type: 
  Country: None (occurrence: None)
  Receive Date: 20070213
  Receipt Date: 20070131
  Transmission Date: 20070707
  Serious: Yes (Hospitalization, Other)
  Sender: FDA-Public Use
  Company Number: PHBS2007BR01936

PATIENT
  Age: 72 Year
  Sex: Female

DRUGS (10)
  1. MIFLASONE [Suspect]
     Indication: ASTHMA
  2. FORADIL [Suspect]
     Indication: ASTHMA
  3. FORASEQ [Suspect]
     Indication: ASTHMA
     Dosage: UNK, BID
  4. SERTRALINE [Concomitant]
     Indication: DEPRESSION
     Dosage: 50 MG, UNK
     Route: 048
  5. AESCULUS HIPPOCASTANUM EXTRACT [Concomitant]
     Indication: POOR PERIPHERAL CIRCULATION
     Dosage: UNK, QD
     Route: 048
  6. VASOPRIL [Concomitant]
     Indication: HYPERTENSION
     Dosage: 5 MG, QD
     Route: 048
  7. AMILORIDE HYDROCHLORIDE [Concomitant]
     Indication: HYPERTENSION
     Dosage: 5 MG, QD
     Route: 048
  8. ALENDRONATE SODIUM [Concomitant]
     Indication: OSTEOPOROSIS
     Dosage: 70 MG, QD
     Route: 048
  9. EUTHYROX [Concomitant]
     Indication: THYROID DISORDER
     Dosage: 50 MG, QD
     Route: 048
  10. CALCIUM [Concomitant]
     Indication: PAIN IN EXTREMITY
     Dosage: UNK, QD
     Route: 048

REACTIONS (9)
  - APHTHOUS STOMATITIS [None]
  - ASTHMA [None]
  - BRONCHOSPASM [None]
  - EXTERNAL FIXATION OF FRACTURE [None]
  - FALL [None]
  - INTERNAL FIXATION OF FRACTURE [None]
  - PARAESTHESIA [None]
  - PRURITUS [None]
  - TIBIA FRACTURE [None]
